FAERS Safety Report 10367570 (Version 2)
Quarter: 2014Q4

REPORT INFORMATION
  Report Type: Spontaneous
  Country: US (occurrence: US)
  Receive Date: 20140807
  Receipt Date: 20141002
  Transmission Date: 20150528
  Serious: No
  Sender: FDA-Public Use
  Company Number: US-TARO-2013P1018533

PATIENT
  Age: 36 Year
  Sex: Male
  Weight: 117.94 kg

DRUGS (5)
  1. FLUOCINOLONE ACETONIDE CREAM USP 0.1% [Suspect]
     Active Substance: FLUOCINOLONE ACETONIDE
     Route: 061
     Dates: end: 201308
  2. OVER-THE-COUNTER ANTIFUNGAL (UNSPECIFIED) [Concomitant]
     Route: 061
  3. DESONIDE CREAM USP 0.05% [Suspect]
     Active Substance: DESONIDE
     Dosage: 0.05% QD-BID
     Route: 061
     Dates: start: 201306, end: 201308
  4. ICY HOT (MENTHOL) [Suspect]
     Active Substance: MENTHOL
     Dates: end: 201308
  5. BENZOCAINE. [Concomitant]
     Active Substance: BENZOCAINE

REACTIONS (3)
  - Nipple swelling [Recovered/Resolved]
  - Drug ineffective [Recovered/Resolved]
  - Breast swelling [Recovered/Resolved]

NARRATIVE: CASE EVENT DATE: 201306
